FAERS Safety Report 10889829 (Version 1)
Quarter: 2015Q1

REPORT INFORMATION
  Report Type: Spontaneous
  Country: US (occurrence: US)
  Receive Date: 20150305
  Receipt Date: 20150305
  Transmission Date: 20150721
  Serious: Yes (Other)
  Sender: FDA-Public Use
  Company Number: US-PFIZER INC-2015075485

PATIENT
  Age: 88 Year
  Sex: Female
  Weight: 41 kg

DRUGS (1)
  1. PREMARIN [Suspect]
     Active Substance: ESTROGENS, CONJUGATED
     Indication: MIGRAINE
     Dosage: 0.3 MG, 1X/DAY

REACTIONS (2)
  - Blindness [Unknown]
  - Off label use [Unknown]
